FAERS Safety Report 20857673 (Version 1)
Quarter: 2022Q2

REPORT INFORMATION
  Report Type: Spontaneous
  Country: RO (occurrence: RO)
  Receive Date: 20220521
  Receipt Date: 20220521
  Transmission Date: 20220721
  Serious: Yes (Other)
  Sender: FDA-Public Use
  Company Number: RO-AMGEN-ROUSP2022086255

PATIENT
  Age: 65 Year
  Sex: Male

DRUGS (2)
  1. XGEVA [Suspect]
     Active Substance: DENOSUMAB
     Indication: Prostate cancer metastatic
     Dosage: 120 MILLIGRAM (ONE BOTTOLE)
     Route: 058
     Dates: start: 20220509
  2. XGEVA [Suspect]
     Active Substance: DENOSUMAB
     Indication: Metastases to bone

REACTIONS (2)
  - Syncope [Recovered/Resolved]
  - Feeling hot [Recovered/Resolved]

NARRATIVE: CASE EVENT DATE: 20220509
